FAERS Safety Report 4941852-6 (Version None)
Quarter: 2006Q1

REPORT INFORMATION
  Report Type: 
  Country: None (occurrence: None)
  Receive Date: 20060313
  Receipt Date: 20060307
  Transmission Date: 20060701
  Serious: Yes (Other)
  Sender: FDA-Public Use
  Company Number: GB-BOEHRINGER INGELHEIM PHARMACEUTICALS, INC.-2006-DE-01267GD

PATIENT
  Age: 42 Year
  Sex: Female

DRUGS (3)
  1. IPRATROPIUM BROMIDE [Suspect]
     Indication: RESPIRATORY THERAPY
     Route: 055
  2. SALBUTAMOL [Concomitant]
     Indication: RESPIRATORY THERAPY
     Route: 055
  3. OXYGEN [Concomitant]
     Indication: RESPIRATORY THERAPY
     Route: 055

REACTIONS (1)
  - PUPILS UNEQUAL [None]
